FAERS Safety Report 6199207-5 (Version None)
Quarter: 2009Q2

REPORT INFORMATION
  Report Type: 
  Country: None (occurrence: None)
  Receive Date: 20090519
  Receipt Date: 20090408
  Transmission Date: 20091009
  Serious: Yes (Life-Threatening)
  Sender: FDA-Public Use
  Company Number: 265255

PATIENT
  Age: 40 Year
  Sex: Male
  Weight: 68 kg

DRUGS (20)
  1. CYTARABINE [Suspect]
     Indication: ACUTE MYELOID LEUKAEMIA
     Dosage: 5500 MG, TWICE DAILY, INTRAVENOUS
     Route: 042
     Dates: start: 20061020
  2. (ZAVEDOS) [Suspect]
     Indication: ACUTE MYELOID LEUKAEMIA
     Dosage: 16 MG, INTRAVENOUS
     Route: 042
     Dates: start: 20061020
  3. (FILGRASTIM) [Suspect]
     Indication: DRUG USE FOR UNKNOWN INDICATION
     Dosage: 300 MCG, SUBCUTANEOUS
     Route: 058
  4. ETOPOSIDE [Concomitant]
  5. (PARACETAMOL) [Concomitant]
  6. TEMAZEPAM [Concomitant]
  7. (TRANEXAMIC ACID) [Concomitant]
  8. HYDROXYUREA [Concomitant]
  9. (FLUCONAZOLE) [Concomitant]
  10. DEXAMETHASONE 4MG TAB [Concomitant]
  11. (DIFFLAM MOUTH) [Concomitant]
  12. (NILSTAT /00036501/) [Concomitant]
  13. MAXOLON [Concomitant]
  14. MIDAZOLAM HCL [Concomitant]
  15. VANCOMYCIN [Concomitant]
  16. (DIAZEPAM) [Concomitant]
  17. MORPHINE [Concomitant]
  18. (RASBURICASE) [Concomitant]
  19. CEFTRIAXONE [Concomitant]
  20. CEFEPIME [Concomitant]

REACTIONS (6)
  - BLOOD POTASSIUM DECREASED [None]
  - DIARRHOEA [None]
  - DRUG TOXICITY [None]
  - LEUKOPENIA [None]
  - NEUTROPENIA [None]
  - THROMBOCYTOPENIA [None]
